FAERS Safety Report 9821179 (Version 1)
Quarter: 2014Q1

REPORT INFORMATION
  Report Type: Spontaneous
  Country: IT (occurrence: None)
  Receive Date: 20140114
  Receipt Date: 20140114
  Transmission Date: 20141002
  Serious: Yes (Other)
  Sender: FDA-Public Use
  Company Number: AUR-APL-2014-00315

PATIENT
  Age: 43 Year
  Sex: Female

DRUGS (1)
  1. AMOXICILLIN [Suspect]
     Indication: ANTIBIOTIC THERAPY
     Dosage: (3000 MG, 1 D, ORAL
     Route: 048
     Dates: start: 20130613, end: 20130613

REACTIONS (1)
  - Bronchospasm [None]
